FAERS Safety Report 9869961 (Version 2)
Quarter: 2014Q1

REPORT INFORMATION
  Report Type: Spontaneous
  Country: US (occurrence: None)
  Receive Date: 20140203
  Receipt Date: 20140218
  Transmission Date: 20141002
  Serious: Yes (Hospitalization)
  Sender: FDA-Public Use
  Company Number: AUR-APL-2014-01001

PATIENT
  Age: 32 Year
  Sex: Male

DRUGS (7)
  1. LEVETIRACETAM [Suspect]
     Indication: STATUS EPILEPTICUS
     Dosage: 2000 MG, 1 IN 1 D
  2. SEMISODIUM VALPROATE [Suspect]
     Indication: STATUS EPILEPTICUS
     Dosage: (2000 MG, 1 IN 1 D)
  3. MIDAZOLAM [Suspect]
     Indication: CONVULSION
     Route: 041
  4. LORAZEPAM [Suspect]
     Indication: STATUS EPILEPTICUS
     Route: 048
  5. LEVETIRACETAM [Suspect]
     Indication: STATUS EPILEPTICUS
     Route: 042
  6. PHENOBARBITAL [Suspect]
     Indication: CONVULSION
     Dosage: (300 MG, 2 IN 1 D)
     Route: 041
  7. CARBAMAZEPINE [Suspect]
     Indication: STATUS EPILEPTICUS
     Dosage: (2000 MG, 3 IN 1 D)

REACTIONS (7)
  - Status epilepticus [None]
  - Skin irritation [None]
  - Altered state of consciousness [None]
  - Condition aggravated [None]
  - Mental status changes [None]
  - Grimacing [None]
  - Motor dysfunction [None]
